FAERS Safety Report 8006219 (Version 7)
Quarter: 2012Q4

REPORT INFORMATION
  Report Type: Report from Study
  Country: JP (occurrence: JP)
  Receive Date: 20110623
  Receipt Date: 20121221
  Transmission Date: 20130627
  Serious: Yes (Hospitalization, Other)
  Sender: FDA-Public Use
  Company Number: JP-CELGENEUS-087-21880-11011438

PATIENT
  Age: 62 Year
  Sex: Female
  Weight: 61.2 kg

DRUGS (49)
  1. REVLIMID [Suspect]
     Indication: MULTIPLE MYELOMA
     Dosage: 25 Milligram
     Route: 048
     Dates: start: 20100805, end: 20100826
  2. REVLIMID [Suspect]
     Dosage: 15 Milligram
     Route: 048
     Dates: start: 20101021, end: 20101110
  3. REVLIMID [Suspect]
     Dosage: 15 Milligram
     Route: 048
     Dates: start: 20101118, end: 20101201
  4. REVLIMID [Suspect]
     Dosage: 10 Milligram
     Route: 048
     Dates: start: 20110107, end: 20110127
  5. REVLIMID [Suspect]
     Dosage: 10 Milligram
     Route: 048
     Dates: start: 20110204, end: 20110217
  6. REVLIMID [Suspect]
     Dosage: 10 Milligram
     Route: 048
     Dates: start: 20110415, end: 20110428
  7. REVLIMID [Suspect]
     Dosage: 10 Milligram
     Route: 048
     Dates: start: 20110602, end: 20110615
  8. REVLIMID [Suspect]
     Dosage: 10 Milligram
     Route: 048
     Dates: start: 20110630, end: 20110713
  9. REVLIMID [Suspect]
     Dosage: 10 Milligram
     Route: 048
     Dates: start: 20110811, end: 20110824
  10. REVLIMID [Suspect]
     Dosage: 10 Milligram
     Route: 048
     Dates: start: 20110908, end: 20110921
  11. REVLIMID [Suspect]
     Dosage: 10 Milligram
     Route: 048
     Dates: start: 20111013, end: 20111026
  12. REVLIMID [Suspect]
     Dosage: 10 Milligram
     Route: 048
     Dates: start: 20120112, end: 20120125
  13. REVLIMID [Suspect]
     Dosage: 10 Milligram
     Route: 048
     Dates: start: 20120405, end: 20120418
  14. REVLIMID [Suspect]
     Dosage: 10 Milligram
     Route: 048
     Dates: start: 20120510, end: 20120523
  15. REVLIMID [Suspect]
     Dosage: 10 Milligram
     Route: 048
     Dates: start: 20120607, end: 20120619
  16. REVLIMID [Suspect]
     Dosage: 10 Milligram
     Route: 048
     Dates: start: 20120705, end: 20120718
  17. REVLIMID [Suspect]
     Dosage: 10 Milligram
     Route: 048
     Dates: start: 20120802, end: 20120807
  18. LENADEX [Suspect]
     Indication: MULTIPLE MYELOMA
     Dosage: 40 Milligram
     Route: 048
     Dates: start: 20100805, end: 20100824
  19. LENADEX [Suspect]
     Dosage: 40 Milligram
     Route: 048
     Dates: start: 20101021, end: 20101110
  20. LENADEX [Suspect]
     Dosage: 40 Milligram
     Route: 048
     Dates: start: 20101118, end: 20101201
  21. LENADEX [Suspect]
     Dosage: 40 Milligram
     Route: 048
     Dates: start: 20110107, end: 20110128
  22. LENADEX [Suspect]
     Dosage: 40 Milligram
     Route: 048
     Dates: start: 20110204, end: 20110211
  23. LENADEX [Suspect]
     Dosage: 40 Milligram
     Route: 048
     Dates: start: 20110415, end: 20110422
  24. LENADEX [Suspect]
     Dosage: 40 Milligram
     Route: 048
     Dates: start: 20110603, end: 20110610
  25. LENADEX [Suspect]
     Dosage: 40 Milligram
     Route: 048
     Dates: start: 20110701, end: 20110708
  26. LENADEX [Suspect]
     Dosage: 40 Milligram
     Route: 048
     Dates: start: 20110812, end: 20110819
  27. LENADEX [Suspect]
     Dosage: 40 Milligram
     Route: 048
     Dates: start: 20110909, end: 20110916
  28. LENADEX [Suspect]
     Dosage: 40 Milligram
     Route: 048
     Dates: start: 20111014, end: 20111021
  29. LENADEX [Suspect]
     Dosage: 40 Milligram
     Route: 048
     Dates: start: 20120113, end: 20120120
  30. LENADEX [Suspect]
     Dosage: 40 Milligram
     Route: 048
     Dates: start: 20120406, end: 20120413
  31. LENADEX [Suspect]
     Dosage: 40 Milligram
     Route: 048
     Dates: start: 20120511, end: 20120518
  32. LENADEX [Suspect]
     Dosage: 40 Milligram
     Route: 048
     Dates: start: 20120608, end: 20120615
  33. LENADEX [Suspect]
     Dosage: 40 Milligram
     Route: 048
     Dates: start: 20120706, end: 20120713
  34. LENADEX [Suspect]
     Dosage: 40 Milligram
     Route: 048
     Dates: start: 20120803, end: 20120803
  35. WARFARIN [Concomitant]
     Indication: PROPHYLAXIS
     Dosage: 15 Milligram
     Route: 048
     Dates: start: 20100805, end: 20101201
  36. MUCODYNE [Concomitant]
     Indication: DRUG USE FOR UNKNOWN INDICATION
     Dosage: 1500 Milligram
     Route: 048
     Dates: start: 20100805
  37. TAKEPRON [Concomitant]
     Indication: DRUG USE FOR UNKNOWN INDICATION
     Dosage: 15 Milligram
     Route: 048
     Dates: start: 20100805
  38. URSO [Concomitant]
     Indication: DRUG USE FOR UNKNOWN INDICATION
     Dosage: 300 Milligram
     Route: 048
     Dates: start: 20100805, end: 20120810
  39. METHYCOBAL [Concomitant]
     Indication: PERIPHERAL NERVE DISORDER NOS
     Dosage: 1500 Microgram
     Route: 048
     Dates: start: 20100805, end: 20120810
  40. LYRICA [Concomitant]
     Indication: PERIPHERAL NERVE DISORDER NOS
     Dosage: 300 Milligram
     Route: 048
     Dates: start: 20100805, end: 20110106
  41. LYRICA [Concomitant]
     Dosage: 150 Milligram
     Route: 048
     Dates: start: 20110106
  42. LUPRAC [Concomitant]
     Indication: CARDIAC FAILURE
     Dosage: 2 Milligram
     Route: 048
     Dates: start: 20100805, end: 20110106
  43. OXYCONTIN [Concomitant]
     Indication: MULTIPLE MYELOMA
     Dosage: 200 Milligram
     Route: 048
     Dates: start: 20100805, end: 20110106
  44. OXYCONTIN [Concomitant]
     Dosage: 160 Milligram
     Route: 048
     Dates: start: 20110106
  45. BAKTAR [Concomitant]
     Indication: PROPHYLAXIS
     Dosage: 2 Tablet
     Route: 048
     Dates: start: 20110106
  46. MUCOSOLVAN [Concomitant]
     Indication: DRUG USE FOR UNKNOWN INDICATION
     Dosage: 45 Milligram
     Route: 048
     Dates: start: 20110106
  47. LANTUS [Concomitant]
     Indication: DIABETES MELLITUS
     Dosage: 14 units
     Route: 058
     Dates: start: 20110106, end: 20110413
  48. LEVEMIR [Concomitant]
     Indication: DIABETES MELLITUS
     Dosage: 14 units
     Route: 058
     Dates: start: 20110414
  49. BAYASPIRIN [Concomitant]
     Indication: PROPHYLAXIS
     Dosage: 100 Milligram
     Route: 048
     Dates: start: 20110513

REACTIONS (12)
  - Asthma [Recovering/Resolving]
  - Herpes zoster [Recovered/Resolved]
  - Platelet count decreased [Recovering/Resolving]
  - Pneumonia [Recovered/Resolved]
  - Neutrophil count decreased [Recovering/Resolving]
  - Anaemia [Recovering/Resolving]
  - Bronchitis [Recovering/Resolving]
  - Blood creatinine increased [Recovered/Resolved]
  - Dehydration [Recovered/Resolved]
  - Neutrophil count decreased [Recovering/Resolving]
  - Pneumonia [Recovered/Resolved]
  - Pneumonia [Recovered/Resolved]
